FAERS Safety Report 7681377-0 (Version None)
Quarter: 2011Q3

REPORT INFORMATION
  Report Type: 
  Country: None (occurrence: None)
  Receive Date: 20110812
  Receipt Date: 20110811
  Transmission Date: 20111222
  Serious: Yes (Hospitalization)
  Sender: FDA-Public Use
  Company Number: JP-ABBOTT-11P-087-0845562-00

PATIENT
  Sex: Female

DRUGS (9)
  1. HUMIRA [Suspect]
     Route: 058
     Dates: start: 20101126
  2. ISONIAZID [Concomitant]
     Indication: ANTIBIOTIC PROPHYLAXIS
     Dosage: 300MG DAILY DOSE
     Route: 048
     Dates: start: 20101007
  3. SLEEPING PILLS [Suspect]
     Indication: PRODUCT USED FOR UNKNOWN INDICATION
     Dosage: MASSIVE DOSE
     Dates: start: 20101107
  4. CELECOXIB [Concomitant]
     Indication: RHEUMATOID ARTHRITIS
  5. METHOTREXATE [Concomitant]
     Indication: RHEUMATOID ARTHRITIS
     Dosage: PER WEEK
     Route: 048
     Dates: start: 20100805
  6. CELECOXIB [Concomitant]
     Indication: PAIN MANAGEMENT
     Dosage: 200MG DAILY DOSE
     Route: 048
     Dates: start: 20100805
  7. OMEPRAZOLE [Concomitant]
     Indication: PROPHYLAXIS AGAINST GASTROINTESTINAL ULCER
     Dosage: 20MG DAILY DOSE
     Route: 048
     Dates: start: 20100805
  8. HUMIRA [Suspect]
     Indication: RHEUMATOID ARTHRITIS
     Route: 058
     Dates: start: 20101028, end: 20101028
  9. OMEPRAZOLE [Concomitant]
     Indication: DRUG THERAPY

REACTIONS (1)
  - SUICIDE ATTEMPT [None]
